FAERS Safety Report 9680818 (Version 2)
Quarter: 2014Q1

REPORT INFORMATION
  Report Type: Report from Study
  Country: NL (occurrence: NL)
  Receive Date: 20131111
  Receipt Date: 20140210
  Transmission Date: 20141002
  Serious: Yes (Other)
  Sender: FDA-Public Use
  Company Number: PHHY2013NL127355

PATIENT
  Sex: Male

DRUGS (10)
  1. ZOMETA [Suspect]
     Indication: PLASMA CELL MYELOMA
     Dosage: 4 MG, PER 4 WEEKS
     Route: 042
     Dates: start: 20130329, end: 20130704
  2. ZOMETA [Suspect]
     Indication: OSTEOPOROSIS
  3. RAPAMUNE [Concomitant]
     Dosage: UNK UKN, UNK
  4. CICLOSPORINE [Concomitant]
     Dosage: UNK UKN, UNK
  5. PREDNISONE [Concomitant]
     Dosage: UNK UKN, UNK
  6. ZELITREX [Concomitant]
     Dosage: UNK UKN, UNK
  7. COTRIMOXAZOLE [Concomitant]
     Dosage: UNK UKN, UNK
  8. SIROLIMUS [Concomitant]
     Dosage: UNK UKN, UNK
  9. FINASTERIDE [Concomitant]
     Dosage: UNK UKN, UNK
  10. AMITRIPTYLINE [Concomitant]
     Dosage: UNK UKN, UNK

REACTIONS (2)
  - Graft versus host disease [Not Recovered/Not Resolved]
  - Jaundice [Not Recovered/Not Resolved]
